FAERS Safety Report 21706399 (Version 1)
Quarter: 2022Q4

REPORT INFORMATION
  Report Type: Spontaneous
  Country: US (occurrence: US)
  Receive Date: 20221209
  Receipt Date: 20221209
  Transmission Date: 20230113
  Serious: Yes (Hospitalization)
  Sender: FDA-Public Use
  Company Number: US-Fresenius Medical Care Renal Therapies Group-FMC-2212-001868

PATIENT
  Age: 74 Year
  Sex: Male
  Weight: 95.4 kg

DRUGS (18)
  1. DELFLEX WITH DEXTROSE 1.5% LOW MAGNESIUM LOW CALCIUM [Suspect]
     Active Substance: CALCIUM CHLORIDE\DEXTROSE\MAGNESIUM CHLORIDE\SODIUM CHLORIDE\SODIUM LACTATE
     Indication: End stage renal disease
     Route: 033
  2. METOPROLOL [Concomitant]
     Active Substance: METOPROLOL
     Route: 048
  3. ELIQUIS [Concomitant]
     Active Substance: APIXABAN
  4. CARVEDILOL [Concomitant]
     Active Substance: CARVEDILOL
  5. CALCITRIOL [Concomitant]
     Active Substance: CALCITRIOL
  6. ALLOPURINOL [Concomitant]
     Active Substance: ALLOPURINOL
  7. AMLODIPINE [Concomitant]
     Active Substance: AMLODIPINE BESYLATE
  8. LIPITOR [Concomitant]
     Active Substance: ATORVASTATIN CALCIUM
  9. VENLAFAXINE [Concomitant]
     Active Substance: VENLAFAXINE HYDROCHLORIDE
  10. CALCIUM ACETATE [Concomitant]
     Active Substance: CALCIUM ACETATE
  11. DOCUSATE SODIUM [Concomitant]
     Active Substance: DOCUSATE SODIUM
  12. FAMOTIDINE [Concomitant]
     Active Substance: FAMOTIDINE
  13. MIRALAX [Concomitant]
     Active Substance: POLYETHYLENE GLYCOL 3350
  14. BETAMETHASONE DIPROPIONATE [Concomitant]
     Active Substance: BETAMETHASONE DIPROPIONATE
  15. CETIRIZINE [Concomitant]
     Active Substance: CETIRIZINE HYDROCHLORIDE
  16. CHOLECALCIFEROL [Concomitant]
     Active Substance: CHOLECALCIFEROL
  17. CYANOCOBALAMIN [Concomitant]
     Active Substance: CYANOCOBALAMIN
  18. LOSARTAN [Concomitant]
     Active Substance: LOSARTAN

REACTIONS (3)
  - Pericardial effusion [Unknown]
  - Lethargy [Unknown]
  - Hypertension [Unknown]
